FAERS Safety Report 4804696-1 (Version None)
Quarter: 2005Q4

REPORT INFORMATION
  Report Type: 
  Country: None (occurrence: None)
  Receive Date: 20051020
  Receipt Date: 20051014
  Transmission Date: 20060501
  Serious: Yes (Death, Life-Threatening)
  Sender: FDA-Public Use
  Company Number: JP-JNJFOC-20051003170

PATIENT
  Age: 86 Year
  Sex: Female

DRUGS (6)
  1. TAVANIC [Suspect]
     Route: 048
     Dates: start: 20050426, end: 20050511
  2. FRAXIPARINE [Suspect]
     Route: 058
     Dates: start: 20050426, end: 20050502
  3. ROCEPHIN [Suspect]
     Route: 042
     Dates: start: 20050426, end: 20050511
  4. EBIXA [Concomitant]
     Route: 048
     Dates: end: 20050511
  5. MEDIATOR [Concomitant]
     Route: 048
     Dates: end: 20050511
  6. PRAXILENE [Concomitant]
     Route: 048
     Dates: end: 20050511

REACTIONS (8)
  - ANAEMIA [None]
  - GASTRIC ULCER [None]
  - GASTRITIS HAEMORRHAGIC [None]
  - HAEMATEMESIS [None]
  - MELAENA [None]
  - RESPIRATORY FAILURE [None]
  - THROMBOCYTOPENIA [None]
  - WHITE BLOOD CELL COUNT INCREASED [None]
